FAERS Safety Report 25621885 (Version 1)
Quarter: 2025Q3

REPORT INFORMATION
  Report Type: Spontaneous
  Country: US (occurrence: US)
  Receive Date: 20250730
  Receipt Date: 20250730
  Transmission Date: 20251020
  Serious: Yes (Other)
  Sender: MACLEODS
  Company Number: US-MACLEODS PHARMA-MAC2025054228

PATIENT

DRUGS (1)
  1. LEVOTHYROXINE [Suspect]
     Active Substance: LEVOTHYROXINE
     Indication: Product used for unknown indication
     Route: 065

REACTIONS (3)
  - Hypothyroidism [Unknown]
  - Therapeutic response changed [Unknown]
  - Product substitution issue [Unknown]
